FAERS Safety Report 4568903-5 (Version None)
Quarter: 2005Q1

REPORT INFORMATION
  Report Type: 
  Country: None (occurrence: None)
  Receive Date: 20050203
  Receipt Date: 20050124
  Transmission Date: 20050727
  Serious: Yes (Other)
  Sender: FDA-Public Use
  Company Number: US-JNJFOC-20041202683

PATIENT
  Sex: Male
  Weight: 63.96 kg

DRUGS (11)
  1. REMICADE [Suspect]
     Route: 042
  2. REMICADE [Suspect]
     Indication: CROHN'S DISEASE
     Route: 042
  3. INH [Suspect]
     Indication: TUBERCULOSIS
  4. ZOLOFT [Concomitant]
  5. MESALAMINE [Concomitant]
  6. VITAMIN B6 [Concomitant]
  7. ZYRTEC [Concomitant]
  8. SINGULAIR [Concomitant]
  9. ZANTAC [Concomitant]
  10. FOLIC ACID [Concomitant]
  11. METHYLPREDNISOLONE [Concomitant]
     Route: 049

REACTIONS (2)
  - PANCREATITIS [None]
  - TUBERCULOSIS [None]
